FAERS Safety Report 10347684 (Version 1)
Quarter: 2014Q3

REPORT INFORMATION
  Report Type: Spontaneous
  Country: US (occurrence: US)
  Receive Date: 20140729
  Receipt Date: 20140729
  Transmission Date: 20150326
  Serious: No
  Sender: FDA-Public Use
  Company Number: US-AMGEN INC.-USASP2014055551

PATIENT
  Age: 13 Year
  Sex: Male
  Weight: 68.03 kg

DRUGS (2)
  1. ENBREL [Suspect]
     Active Substance: ETANERCEPT
     Indication: PRODUCT USED FOR UNKNOWN INDICATION
     Dosage: 50 MG, QWK
     Route: 058
  2. MOTRIN [Concomitant]
     Active Substance: IBUPROFEN
     Dosage: 400 MG, UNK

REACTIONS (2)
  - Dry skin [Unknown]
  - Rash pruritic [Unknown]

NARRATIVE: CASE EVENT DATE: 20140621
